FAERS Safety Report 7958513 (Version 3)
Quarter: 2013Q2

REPORT INFORMATION
  Report Type: Report from Study
  Country: JP (occurrence: JP)
  Receive Date: 20110524
  Receipt Date: 20130606
  Transmission Date: 20140414
  Serious: Yes (Hospitalization, Other)
  Sender: FDA-Public Use
  Company Number: PHHY2011JP40943

PATIENT
  Age: 56 Year
  Sex: Male

DRUGS (12)
  1. AFINITOR [Suspect]
     Indication: METASTATIC RENAL CELL CARCINOMA
     Dosage: 10 MG, DAILY
     Route: 048
     Dates: start: 20101029, end: 20101105
  2. CORTRIL [Concomitant]
     Indication: METASTATIC RENAL CELL CARCINOMA
     Dosage: 50 MG
     Route: 048
     Dates: start: 20080527
  3. RIVOTRIL [Concomitant]
     Indication: METASTATIC RENAL CELL CARCINOMA
     Dosage: 1 MG
     Route: 048
     Dates: start: 20091214
  4. LASIX [Concomitant]
     Indication: METASTATIC RENAL CELL CARCINOMA
     Dosage: 20 MG
     Route: 048
     Dates: start: 20101007, end: 20101111
  5. PARIET [Concomitant]
     Indication: METASTATIC RENAL CELL CARCINOMA
     Dosage: 20 MG
     Route: 048
     Dates: start: 20100623
  6. HYPEN [Concomitant]
     Indication: METASTATIC RENAL CELL CARCINOMA
     Dosage: 400 MG
     Route: 048
     Dates: start: 20100419
  7. OXYCONTIN [Concomitant]
     Indication: METASTATIC RENAL CELL CARCINOMA
     Dosage: 80 MG
     Route: 048
     Dates: start: 20070524
  8. OXINORM [Concomitant]
     Indication: METASTATIC RENAL CELL CARCINOMA
     Dosage: 5 MG, UNK
     Route: 048
     Dates: start: 20070626
  9. PAXIL [Concomitant]
     Indication: METASTATIC RENAL CELL CARCINOMA
     Dosage: 40 MG
     Route: 048
     Dates: start: 20091228
  10. DESYREL [Concomitant]
     Indication: METASTATIC RENAL CELL CARCINOMA
     Dosage: 25 MG
     Route: 048
     Dates: start: 20100127
  11. BLOPRESS [Concomitant]
     Indication: METASTATIC RENAL CELL CARCINOMA
     Dosage: 8 MG
     Route: 048
     Dates: start: 20100613
  12. BONALON [Concomitant]
     Indication: METASTATIC RENAL CELL CARCINOMA
     Dosage: 35 MG
     Route: 048
     Dates: start: 20071119

REACTIONS (6)
  - Hepatic function abnormal [Recovered/Resolved]
  - Sepsis [Recovered/Resolved]
  - Renal failure [Unknown]
  - Pyrexia [Unknown]
  - Blood pressure decreased [Unknown]
  - Haemoglobin decreased [Unknown]
